FAERS Safety Report 19820275 (Version 1)
Quarter: 2021Q3

REPORT INFORMATION
  Report Type: Spontaneous
  Country: US (occurrence: US)
  Receive Date: 20210909
  Receipt Date: 20210909
  Transmission Date: 20211014
  Serious: No
  Sender: FDA-Public Use
  Company Number: None

PATIENT
  Sex: Female

DRUGS (1)
  1. EPOGEN [Suspect]
     Active Substance: ERYTHROPOIETIN
     Indication: ANAEMIA
     Dosage: ?          OTHER STRENGTH:20,000U/M;OTHER DOSE:40,000UNITS;OTHER FREQUENCY:EVERY 3 WEEKS;?
     Route: 058
     Dates: start: 20210312

REACTIONS (6)
  - Treatment noncompliance [None]
  - Syncope [None]
  - Anaemia [None]
  - Muscle spasms [None]
  - Pulse absent [None]
  - Heart rate decreased [None]
